FAERS Safety Report 7469119-5 (Version None)
Quarter: 2011Q2

REPORT INFORMATION
  Report Type: 
  Country: None (occurrence: None)
  Receive Date: 20110510
  Receipt Date: 20110427
  Transmission Date: 20111010
  Serious: Yes (Other)
  Sender: FDA-Public Use
  Company Number: CA-ELI_LILLY_AND_COMPANY-CA201104007456

PATIENT
  Sex: Male

DRUGS (8)
  1. ZYPREXA [Suspect]
     Indication: SCHIZOPHRENIA
     Dosage: 10 MG, BID
     Route: 048
  2. HALOPERIDOL [Concomitant]
  3. ZYPREXA [Suspect]
     Dosage: 2.5 MG, TID
     Route: 048
  4. BUSPIRONE HCL [Concomitant]
  5. FLUOXETINE [Concomitant]
  6. ZYPREXA [Suspect]
     Dosage: 5 MG, BID
     Route: 048
  7. CLONAZEPAM [Concomitant]
  8. GABAPENTIN [Concomitant]

REACTIONS (3)
  - HEPATITIS C [None]
  - TYPE 2 DIABETES MELLITUS [None]
  - RETINAL DETACHMENT [None]
